FAERS Safety Report 9812803 (Version 2)
Quarter: 2014Q1

REPORT INFORMATION
  Report Type: Spontaneous
  Country: AR (occurrence: AR)
  Receive Date: 20140113
  Receipt Date: 20140131
  Transmission Date: 20141002
  Serious: Yes (Other)
  Sender: FDA-Public Use
  Company Number: AR-AMGEN-ARGSP2014001850

PATIENT
  Age: 77 Year
  Sex: Female

DRUGS (9)
  1. ENBREL [Suspect]
     Indication: RHEUMATOID ARTHRITIS
     Dosage: 50 MG, WEEKLY
     Route: 065
     Dates: start: 20091102, end: 20131129
  2. ENALAPRIL MALEATE [Concomitant]
     Indication: HYPERTENSION
     Dosage: 20 MG, 1X/DAY
  3. ALPLAX [Concomitant]
     Dosage: 5 MG, 1X/DAY
  4. COUMARIN [Concomitant]
     Dosage: 1 UNKNOWN, DAILY
  5. FOLIC ACID [Concomitant]
     Dosage: 5 MG, 1X/DAY
  6. OMEPRAZOLE [Concomitant]
     Dosage: 20 MG, 1X/DAY
  7. ARTRODAR [Concomitant]
     Indication: OSTEOARTHRITIS
     Dosage: 50 MG, 1X/DAY
  8. MELOXICAM [Concomitant]
     Dosage: UNK
  9. ASPIRINETAS [Concomitant]
     Dosage: 1 UNKNOWN, DAILY

REACTIONS (2)
  - Haemorrhage [Not Recovered/Not Resolved]
  - Hypertension [Not Recovered/Not Resolved]
